FAERS Safety Report 18303950 (Version 1)
Quarter: 2020Q3

REPORT INFORMATION
  Report Type: Spontaneous
  Country: JP (occurrence: JP)
  Receive Date: 20200924
  Receipt Date: 20200924
  Transmission Date: 20201103
  Serious: Yes (Death)
  Sender: FDA-Public Use
  Company Number: JP-MTPC-MTPC2020-0063944

PATIENT

DRUGS (6)
  1. CYLOCIDE [Concomitant]
     Active Substance: CYTARABINE
     Route: 065
  2. RADICUT BAG FOR I.V. INFUSION 30MG [Suspect]
     Active Substance: EDARAVONE
     Dosage: 30 MILLIGRAM, QD
     Route: 041
  3. GLYCEOL [Concomitant]
     Active Substance: GLYCERIN
     Route: 065
  4. DIAMOX SEQUELS [Concomitant]
     Active Substance: ACETAZOLAMIDE
     Route: 065
  5. RADICUT BAG FOR I.V. INFUSION 30MG [Suspect]
     Active Substance: EDARAVONE
     Dosage: 60 MILLIGRAM, QD
     Route: 041
  6. RADICUT BAG FOR I.V. INFUSION 30MG [Suspect]
     Active Substance: EDARAVONE
     Dosage: 30 MILLIGRAM, QD
     Route: 041

REACTIONS (1)
  - Death [Fatal]
